FAERS Safety Report 4372596-X (Version None)
Quarter: 2004Q2

REPORT INFORMATION
  Report Type: 
  Country: None (occurrence: None)
  Receive Date: 20040608
  Receipt Date: 20040602
  Transmission Date: 20050107
  Serious: Yes (Other)
  Sender: FDA-Public Use
  Company Number: 200414220US

PATIENT
  Sex: Female
  Weight: 72.7 kg

DRUGS (2)
  1. ARAVA [Suspect]
     Indication: RHEUMATOID ARTHRITIS
     Route: 048
     Dates: start: 20010301, end: 20040501
  2. ASPIRIN [Concomitant]
     Dosage: DOSE: NOT PROVIDED

REACTIONS (3)
  - ALANINE AMINOTRANSFERASE INCREASED [None]
  - ASPARTATE AMINOTRANSFERASE INCREASED [None]
  - LIVER FUNCTION TEST ABNORMAL [None]
